FAERS Safety Report 4538400-1 (Version None)
Quarter: 2004Q4

REPORT INFORMATION
  Report Type: 
  Country: None (occurrence: None)
  Receive Date: 20041223
  Receipt Date: 20041223
  Transmission Date: 20050328
  Serious: Yes (Other)
  Sender: FDA-Public Use
  Company Number: None

PATIENT
  Age: 59 Year
  Sex: Female
  Weight: 66.6788 kg

DRUGS (18)
  1. REMICADE [Suspect]
     Indication: RHEUMATOID ARTHRITIS
     Dosage: 200 MG IV
     Route: 042
     Dates: start: 20040708
  2. REMICADE [Suspect]
     Indication: RHEUMATOID ARTHRITIS
     Dosage: 200 MG IV
     Route: 042
     Dates: start: 20040721
  3. REMICADE [Suspect]
     Indication: RHEUMATOID ARTHRITIS
     Dosage: 200 MG IV
     Route: 042
     Dates: start: 20040903
  4. REMICADE [Suspect]
     Indication: RHEUMATOID ARTHRITIS
     Dosage: 200 MG IV
     Route: 042
     Dates: start: 20041110
  5. COLACE [Concomitant]
  6. TIGAN [Concomitant]
  7. ENLOSE [Concomitant]
  8. ANEMAGEN [Concomitant]
  9. ARAVA [Concomitant]
  10. CITRACAL [Concomitant]
  11. CALCITRIOL [Concomitant]
  12. KLOR-CON [Concomitant]
  13. TEGRETOL [Concomitant]
  14. DYAZIDE [Concomitant]
  15. PROZAC [Concomitant]
  16. CENTRUM [Concomitant]
  17. REGLAN [Concomitant]
  18. PREVACID [Concomitant]

REACTIONS (1)
  - RASH [None]
